FAERS Safety Report 6172567-7 (Version None)
Quarter: 2009Q2

REPORT INFORMATION
  Report Type: 
  Country: None (occurrence: None)
  Receive Date: 20090428
  Receipt Date: 20090413
  Transmission Date: 20091009
  Serious: No
  Sender: FDA-Public Use
  Company Number: 8044843

PATIENT
  Sex: Female

DRUGS (11)
  1. KEPPRA [Suspect]
     Dosage: 250 MG 2/D ITC
     Route: 039
     Dates: start: 20070922
  2. KLONOPIN, 0.5 MG 2/D ITC [Concomitant]
  3. PRILOSEC [Concomitant]
  4. DIASTAT [Concomitant]
  5. ZYRTEC [Concomitant]
  6. SYNTHROID [Concomitant]
  7. BANZEL [Concomitant]
  8. LIPOFUNDIN MCT [Concomitant]
  9. FELBATOL [Concomitant]
  10. CARNITOR [Concomitant]
  11. BICITRA /02399901/ [Concomitant]

REACTIONS (1)
  - WRONG TECHNIQUE IN DRUG USAGE PROCESS [None]
